FAERS Safety Report 4687715-5 (Version None)
Quarter: 2005Q2

REPORT INFORMATION
  Report Type: 
  Country: None (occurrence: None)
  Receive Date: 20050608
  Receipt Date: 20050608
  Transmission Date: 20051028
  Serious: Yes (Hospitalization)
  Sender: FDA-Public Use
  Company Number: None

PATIENT
  Age: 57 Year
  Sex: Male
  Weight: 180.3 kg

DRUGS (10)
  1. ASPIRIN [Suspect]
     Indication: CORONARY ARTERY DISEASE
     Dosage: 325MG PO QD  CHRONIC
     Route: 048
  2. AVANDIA [Concomitant]
  3. ADVICOR [Concomitant]
  4. COZAAR [Concomitant]
  5. TOPROL-XL [Concomitant]
  6. BUMEX [Concomitant]
  7. ZOLOFT [Concomitant]
  8. BACTRIM DS [Concomitant]
  9. HUMALOG [Concomitant]
  10. LANTUS [Concomitant]

REACTIONS (4)
  - ANAEMIA [None]
  - CONSTIPATION [None]
  - DUODENAL ULCER [None]
  - GASTRITIS EROSIVE [None]
